FAERS Safety Report 11375281 (Version 1)
Quarter: 2015Q3

REPORT INFORMATION
  Report Type: Report from Study
  Country: AR (occurrence: AR)
  Receive Date: 20150813
  Receipt Date: 20150813
  Transmission Date: 20151125
  Serious: Yes (Disabling)
  Sender: FDA-Public Use
  Company Number: AR-ABBVIE-15K-007-1443141-00

PATIENT
  Age: 68 Year
  Sex: Female

DRUGS (1)
  1. HUMIRA [Suspect]
     Active Substance: ADALIMUMAB
     Indication: RHEUMATOID ARTHRITIS
     Route: 058
     Dates: start: 20110801, end: 201508

REACTIONS (2)
  - Drug ineffective [Not Recovered/Not Resolved]
  - Ankle deformity [Recovering/Resolving]

NARRATIVE: CASE EVENT DATE: 201411
